FAERS Safety Report 10169881 (Version 1)
Quarter: 2014Q2

REPORT INFORMATION
  Report Type: Spontaneous
  Country: SG (occurrence: SG)
  Receive Date: 20140513
  Receipt Date: 20140513
  Transmission Date: 20141212
  Serious: Yes (Other)
  Sender: FDA-Public Use
  Company Number: SG-BAYER-2014-069158

PATIENT
  Age: 33 Year
  Sex: Female

DRUGS (6)
  1. ACETYLSALICYLIC ACID (} 100 MG) [Suspect]
     Route: 048
  2. BRUFEN [Suspect]
     Route: 048
  3. DICLOFENAC [Suspect]
     Route: 048
  4. FELDENE [Suspect]
     Route: 048
  5. NAPROXEN [Suspect]
     Route: 048
  6. PONSTAN [Suspect]
     Route: 048

REACTIONS (1)
  - Angioedema [Unknown]
